FAERS Safety Report 5427386-3 (Version None)
Quarter: 2007Q3

REPORT INFORMATION
  Report Type: 
  Country: None (occurrence: None)
  Receive Date: 20070828
  Receipt Date: 20070820
  Transmission Date: 20080115
  Serious: Yes (Life-Threatening)
  Sender: FDA-Public Use
  Company Number: CL-JNJFOC-20070804089

PATIENT
  Age: 23 Year

DRUGS (2)
  1. REMICADE [Suspect]
     Indication: CROHN'S DISEASE
     Route: 050
  2. REMICADE [Suspect]
     Indication: SPONDYLITIS
     Dosage: TREATED FOR 2 YEARS
     Route: 050

REACTIONS (2)
  - CROHN'S DISEASE [None]
  - TUBERCULOSIS [None]
